FAERS Safety Report 8805623 (Version 1)
Quarter: 2012Q4

REPORT INFORMATION
  Report Type: Spontaneous
  Country: CH (occurrence: None)
  Receive Date: 20120917
  Receipt Date: 20120917
  Transmission Date: 20130627
  Serious: Yes (Death)
  Sender: FDA-Public Use
  Company Number: 2012090024

PATIENT
  Age: 58 Year
  Sex: Female
  Weight: 57 kg

DRUGS (18)
  1. TOREM [Suspect]
     Route: 048
  2. FERINJECT [Suspect]
     Dates: start: 20120804, end: 20120804
  3. FERINJECT [Suspect]
     Route: 042
  4. MOTILIUM [Suspect]
  5. MOTILIUM [Suspect]
     Route: 048
  6. ZOLOFT [Suspect]
     Route: 048
  7. ZITHROMAX [Suspect]
  8. ZITHROMAX [Suspect]
     Route: 048
  9. NEXIUM I.V. [Suspect]
  10. NEXIUM I.V. [Suspect]
     Route: 048
  11. BELOC ZOK (METOPROLOL SUCCINATE) [Concomitant]
  12. DIGOXIN (DIGOXIN) [Concomitant]
  13. ALDACTONE (SPIRONOLACTONE) [Concomitant]
  14. MAGNESIOCARD (MAGNESIUM ASPARTATE HYDROCHLORIDE) [Concomitant]
  15. FLATULEX (SIMETHICONE) [Concomitant]
  16. SPIRIVA (TIOTROPIUM BROMIDE) [Concomitant]
  17. PEMZEK GEL [Concomitant]
  18. ALUCOL GEL (ALUMINIMUM HYDROXIDE, MAGNESIUM HYDROXIDE) [Concomitant]

REACTIONS (3)
  - Type IV hypersensitivity reaction [None]
  - Anaphylactic shock [None]
  - Bradycardia [None]
